FAERS Safety Report 4297207-3 (Version None)
Quarter: 2004Q1

REPORT INFORMATION
  Report Type: 
  Country: None (occurrence: None)
  Receive Date: 20040213
  Receipt Date: 20040203
  Transmission Date: 20041129
  Serious: Yes (Hospitalization)
  Sender: FDA-Public Use
  Company Number: 200313157

PATIENT
  Age: 75 Year
  Sex: Male

DRUGS (2)
  1. BOTOX [Suspect]
     Indication: TORTICOLLIS
     Dosage: 100 UNITS PRN; IM
     Route: 030
  2. BACLOFEN [Concomitant]

REACTIONS (3)
  - DRUG TOXICITY [None]
  - HYPOTONIA [None]
  - PARALYSIS [None]
